FAERS Safety Report 11645584 (Version 1)
Quarter: 2015Q4

REPORT INFORMATION
  Report Type: Spontaneous
  Country: BR (occurrence: BR)
  Receive Date: 20151020
  Receipt Date: 20151020
  Transmission Date: 20160304
  Serious: Yes (Hospitalization, Other)
  Sender: FDA-Public Use
  Company Number: BR-PFIZER INC-2015347161

PATIENT
  Age: 61 Year
  Sex: Female
  Weight: 36 kg

DRUGS (4)
  1. MOTILIUM [Concomitant]
     Active Substance: DOMPERIDONE
     Dosage: UNK
  2. LYRICA [Suspect]
     Active Substance: PREGABALIN
     Indication: FIBROMYALGIA
     Dosage: 75 MG, 2X/DAY
     Route: 048
  3. LYRICA [Suspect]
     Active Substance: PREGABALIN
     Indication: PAIN
     Dosage: 75 MG, DAILY
     Route: 048
  4. BROMOPRIDE [Concomitant]
     Active Substance: BROMOPRIDE
     Dosage: UNK

REACTIONS (8)
  - Diabetes mellitus [Unknown]
  - Femur fracture [Unknown]
  - Drug ineffective [Unknown]
  - Glaucoma [Unknown]
  - Respiratory disorder [Unknown]
  - Cardiac disorder [Unknown]
  - Weight decreased [Not Recovered/Not Resolved]
  - Fall [Unknown]

NARRATIVE: CASE EVENT DATE: 2015
